FAERS Safety Report 18247592 (Version 3)
Quarter: 2020Q4

REPORT INFORMATION
  Report Type: Spontaneous
  Country: JP (occurrence: JP)
  Receive Date: 20200909
  Receipt Date: 20201104
  Transmission Date: 20210113
  Serious: Yes (Hospitalization, Other)
  Sender: FDA-Public Use
  Company Number: JP-ROCHE-2644191

PATIENT
  Age: 88 Year
  Sex: Female

DRUGS (3)
  1. VEGAMOX [Suspect]
     Active Substance: MOXIFLOXACIN HYDROCHLORIDE
     Indication: ENDOPHTHALMITIS
     Route: 047
  2. LUCENTIS [Suspect]
     Active Substance: RANIBIZUMAB
     Indication: MACULAR OEDEMA
     Dosage: RECENT DOSES RECEIVED ON 13/MAY/2020, 25/JUN/2020 , 27/JUL/2020 AND 04/AUG/2020.
     Route: 031
  3. VEGAMOX [Suspect]
     Active Substance: MOXIFLOXACIN HYDROCHLORIDE
     Route: 047
     Dates: start: 20200705, end: 20200707

REACTIONS (6)
  - Eye pain [Unknown]
  - Endophthalmitis [Recovering/Resolving]
  - Iris adhesions [Recovered/Resolved]
  - Retinal haemorrhage [Not Recovered/Not Resolved]
  - Post procedural infection [Recovering/Resolving]
  - Visual acuity reduced [Recovered/Resolved]

NARRATIVE: CASE EVENT DATE: 20200706
